FAERS Safety Report 9064086 (Version 1)
Quarter: 2013Q1

REPORT INFORMATION
  Report Type: Spontaneous
  Country: US (occurrence: US)
  Receive Date: 20130128
  Receipt Date: 20130128
  Transmission Date: 20140127
  Serious: No
  Sender: FDA-Public Use
  Company Number: US-MYLANLABS-2012S1021636

PATIENT
  Sex: Female

DRUGS (3)
  1. PANTOPRAZOLE SODIUM DELAYED RELEASE [Suspect]
     Indication: GASTROOESOPHAGEAL REFLUX DISEASE
  2. GLUCOSAMINE + CHONDROITIN /01625901/ [Concomitant]
  3. CALCIUM [Concomitant]

REACTIONS (2)
  - Drug ineffective [Not Recovered/Not Resolved]
  - Gastrooesophageal reflux disease [Not Recovered/Not Resolved]
